FAERS Safety Report 6370013-1 (Version None)
Quarter: 2009Q3

REPORT INFORMATION
  Report Type: 
  Country: None (occurrence: None)
  Receive Date: 20090923
  Receipt Date: 20070430
  Transmission Date: 20100115
  Serious: No
  Sender: FDA-Public Use
  Company Number: US-ASTRAZENECA-2006UW03297

PATIENT
  Age: 420 Month
  Sex: Female
  Weight: 95.3 kg

DRUGS (16)
  1. SEROQUEL [Suspect]
     Indication: PSYCHOTIC DISORDER
     Route: 048
     Dates: start: 20010101, end: 20060101
  2. SEROQUEL [Suspect]
     Dosage: 25-100 MG
     Route: 048
     Dates: start: 20021205
  3. SEROQUEL [Suspect]
     Route: 048
     Dates: start: 20050101
  4. GEODON [Concomitant]
     Route: 048
     Dates: start: 20010101, end: 20021001
  5. PAXIL [Concomitant]
     Route: 048
     Dates: start: 20020101
  6. AMBIEN [Concomitant]
     Route: 048
     Dates: start: 20040101
  7. MIRTAZAPINE [Concomitant]
     Route: 048
     Dates: start: 20050101
  8. EFFEXOR [Concomitant]
     Dates: start: 19990331
  9. CELEXA [Concomitant]
     Dates: start: 19990414
  10. CYCLOBENZAPRINE [Concomitant]
     Dates: start: 19990621
  11. NABUMETONE [Concomitant]
     Dates: start: 19990929
  12. TEMAZEPAM [Concomitant]
     Dates: start: 19991201
  13. SYNTHROID [Concomitant]
     Dosage: 25-75 MCG
     Dates: start: 20021022
  14. TRAZODONE [Concomitant]
     Dates: start: 20021024
  15. ZYPREXA [Concomitant]
     Dates: start: 20021105
  16. CELEBREX [Concomitant]
     Dates: start: 20021204

REACTIONS (6)
  - BLOOD CHOLESTEROL INCREASED [None]
  - BLOOD TRIGLYCERIDES INCREASED [None]
  - DIABETES MELLITUS [None]
  - HYSTERECTOMY [None]
  - OBESITY [None]
  - WEIGHT INCREASED [None]
